FAERS Safety Report 24872515 (Version 2)
Quarter: 2025Q1

REPORT INFORMATION
  Report Type: Spontaneous
  Country: JP (occurrence: JP)
  Receive Date: 20250122
  Receipt Date: 20250212
  Transmission Date: 20250409
  Serious: Yes (Other)
  Sender: IDORSIA PHARMACEUTICALS
  Company Number: JP-IDORSIA-009029-2025-JP

PATIENT
  Age: 6 Decade
  Sex: Female

DRUGS (1)
  1. QUVIVIQ [Suspect]
     Active Substance: DARIDOREXANT
     Indication: Insomnia
     Route: 048

REACTIONS (5)
  - Anterograde amnesia [Recovered/Resolved]
  - Nightmare [Recovered/Resolved]
  - Hallucination [Recovered/Resolved]
  - Headache [Recovered/Resolved]
  - Muscular weakness [Recovered/Resolved]
